FAERS Safety Report 22340899 (Version 3)
Quarter: 2024Q3

REPORT INFORMATION
  Report Type: Spontaneous
  Country: US (occurrence: US)
  Receive Date: 20230518
  Receipt Date: 20240930
  Transmission Date: 20241016
  Serious: Yes (Hospitalization)
  Sender: PFIZER
  Company Number: US-PFIZER INC-US-GBT-021528

PATIENT
  Age: 16 Year
  Sex: Female

DRUGS (1)
  1. OXBRYTA [Suspect]
     Active Substance: VOXELOTOR
     Dosage: 1500 MG, 1X/DAY
     Route: 048

REACTIONS (2)
  - Sickle cell anaemia with crisis [Unknown]
  - Product dose omission issue [Unknown]
